FAERS Safety Report 5629845-7 (Version None)
Quarter: 2008Q1

REPORT INFORMATION
  Report Type: 
  Country: None (occurrence: None)
  Receive Date: 20080218
  Receipt Date: 20080211
  Transmission Date: 20080703
  Serious: Yes (Death)
  Sender: FDA-Public Use
  Company Number: US-ASTRAZENECA-2006UW11151

PATIENT
  Age: 17539 Day
  Sex: Female
  Weight: 118.2 kg

DRUGS (4)
  1. SEROQUEL [Suspect]
     Indication: DEPRESSION
     Dosage: 25 MG TO 900 MG
     Route: 048
     Dates: start: 20010213, end: 20070902
  2. SEROQUEL [Suspect]
     Indication: SCHIZOPHRENIA
     Dosage: 25 MG TO 900 MG
     Route: 048
     Dates: start: 20010213, end: 20070902
  3. SEROQUEL [Suspect]
     Indication: BIPOLAR DISORDER
     Dosage: 25 MG TO 900 MG
     Route: 048
     Dates: start: 20010213, end: 20070902
  4. PAXIL [Concomitant]
     Dosage: 20 MG TO 30 MG
     Dates: start: 20010101, end: 20020101

REACTIONS (3)
  - BLOOD CHOLESTEROL INCREASED [None]
  - DEATH [None]
  - DIABETES MELLITUS [None]
